FAERS Safety Report 5822873-8 (Version None)
Quarter: 2008Q3

REPORT INFORMATION
  Report Type: 
  Country: None (occurrence: None)
  Receive Date: 20080718
  Receipt Date: 20080704
  Transmission Date: 20090109
  Serious: Yes (Other)
  Sender: FDA-Public Use
  Company Number: STI-2008-02394

PATIENT
  Age: 13 Year
  Sex: Male

DRUGS (1)
  1. HYDROCORTISONE 1%-P CREAM [Suspect]
     Indication: DERMATITIS ATOPIC
     Dosage: TOPICALLY 30 G TUBE EVERY 3-4 WEEKS
     Route: 061

REACTIONS (5)
  - CATARACT SUBCAPSULAR [None]
  - ENDOPHTHALMITIS [None]
  - INTRAOCULAR LENS IMPLANT [None]
  - POST PROCEDURAL INFECTION [None]
  - STAPHYLOCOCCAL INFECTION [None]
